FAERS Safety Report 20341047 (Version 4)
Quarter: 2023Q4

REPORT INFORMATION
  Report Type: Spontaneous
  Country: US (occurrence: US)
  Receive Date: 20220117
  Receipt Date: 20231205
  Transmission Date: 20240109
  Serious: No
  Sender: FDA-Public Use
  Company Number: US-KYOWAKIRIN-2022BKK000036

PATIENT

DRUGS (11)
  1. CRYSVITA [Suspect]
     Active Substance: BUROSUMAB-TWZA
     Indication: Hereditary hypophosphataemic rickets
     Dosage: 70 MG, 1X/MONTH
     Route: 058
  2. CRYSVITA [Suspect]
     Active Substance: BUROSUMAB-TWZA
     Indication: Metabolic syndrome
     Dosage: 60 MG, 1X/4 WEEKS (UNDER THE SKIN)
     Route: 058
  3. CRYSVITA [Suspect]
     Active Substance: BUROSUMAB-TWZA
     Dosage: 10 MG, 1X/4 WEEKS  (UNDER THE SKIN)
     Route: 058
  4. CRYSVITA [Suspect]
     Active Substance: BUROSUMAB-TWZA
     Indication: Hereditary hypophosphataemic rickets
     Dosage: 70 MG, 1X/MONTH
     Route: 058
  5. CRYSVITA [Suspect]
     Active Substance: BUROSUMAB-TWZA
     Indication: Metabolic syndrome
     Dosage: 60 MG, 1X/4 WEEKS (UNDER THE SKIN)
     Route: 058
  6. CRYSVITA [Suspect]
     Active Substance: BUROSUMAB-TWZA
     Dosage: 60 MG, 1X/4 WEEKS (UNDER THE SKIN)
     Route: 058
  7. LIOTHYRONINE SODIUM [Concomitant]
     Active Substance: LIOTHYRONINE SODIUM
     Indication: Product used for unknown indication
     Dosage: 5 UG
     Route: 065
  8. VIVELLE-DOT [Concomitant]
     Active Substance: ESTRADIOL
     Indication: Product used for unknown indication
     Dosage: 0375MG/24 PATCH TDSW
     Route: 065
  9. VITAMIN D3 [Concomitant]
     Active Substance: CHOLECALCIFEROL
     Indication: Product used for unknown indication
     Dosage: 100000 G
     Route: 065
  10. BUDESONIDE [Concomitant]
     Active Substance: BUDESONIDE
     Indication: Product used for unknown indication
     Dosage: 32 UG, SPRAY/PUMP
     Route: 065
  11. TETRACYCLINE HYDROCHLORIDE [Concomitant]
     Active Substance: TETRACYCLINE HYDROCHLORIDE
     Indication: Product used for unknown indication
     Dosage: 250 MG
     Route: 065

REACTIONS (9)
  - Injection site bruising [Unknown]
  - Food allergy [Unknown]
  - Ear pain [Unknown]
  - Sunburn [Unknown]
  - Pain in extremity [Unknown]
  - Blood phosphorus decreased [Unknown]
  - Malaise [Unknown]
  - Product use in unapproved indication [Unknown]
  - Product dose omission issue [Unknown]
